FAERS Safety Report 11231288 (Version 1)
Quarter: 2015Q2

REPORT INFORMATION
  Report Type: Spontaneous
  Country: US (occurrence: None)
  Receive Date: 20150630
  Receipt Date: 20150630
  Transmission Date: 20150821
  Serious: Yes (Life-Threatening, Hospitalization, Other)
  Sender: FDA-Public Use
  Company Number: None

PATIENT
  Age: 24 Year
  Sex: Male
  Weight: 106 kg

DRUGS (7)
  1. INSULIN GLULISINE [Concomitant]
     Active Substance: INSULIN GLULISINE
  2. INVOKANA [Suspect]
     Active Substance: CANAGLIFLOZIN
     Indication: TYPE 1 DIABETES MELLITUS
     Route: 048
     Dates: start: 20150424, end: 20150626
  3. LISINOPRIL. [Concomitant]
     Active Substance: LISINOPRIL
  4. GLUMETZA [Concomitant]
     Active Substance: METFORMIN HYDROCHLORIDE
  5. PRAVASTATIN [Concomitant]
     Active Substance: PRAVASTATIN\PRAVASTATIN SODIUM
  6. INVOKANA [Concomitant]
     Active Substance: CANAGLIFLOZIN
  7. MEDTRONIC PARADIGM INSULIN PUMP [Concomitant]

REACTIONS (4)
  - Vomiting [None]
  - Nausea [None]
  - Diabetic ketoacidosis [None]
  - Alcohol use [None]

NARRATIVE: CASE EVENT DATE: 20150627
